FAERS Safety Report 4387546-X (Version None)
Quarter: 2004Q2

REPORT INFORMATION
  Report Type: 
  Country: None (occurrence: None)
  Receive Date: 20040630
  Receipt Date: 20040506
  Transmission Date: 20050107
  Serious: No
  Sender: FDA-Public Use
  Company Number: US-GLAXOSMITHKLINE-A0509806A

PATIENT
  Age: 70 Year
  Sex: Female

DRUGS (6)
  1. ADVAIR HFA [Suspect]
     Indication: ILL-DEFINED DISORDER
     Route: 055
     Dates: start: 20031001
  2. SYNTHROID [Concomitant]
  3. VIOXX [Concomitant]
  4. WARFARIN SODIUM [Concomitant]
  5. FOSAMAX [Concomitant]
  6. MULTIVITAMIN [Concomitant]

REACTIONS (1)
  - SWELLING FACE [None]
